FAERS Safety Report 17846488 (Version 1)
Quarter: 2020Q2

REPORT INFORMATION
  Report Type: Report from Study
  Country: CO (occurrence: CO)
  Receive Date: 20200601
  Receipt Date: 20200601
  Transmission Date: 20200714
  Serious: Yes (Hospitalization)
  Sender: FDA-Public Use
  Company Number: NVSC2019CO091241

PATIENT
  Sex: Male

DRUGS (1)
  1. JADENU [Suspect]
     Active Substance: DEFERASIROX
     Indication: ACUTE LEUKAEMIA
     Dosage: 3 DF, QD (10 MONTHS AGO)
     Route: 065

REACTIONS (3)
  - Inappropriate schedule of product administration [Unknown]
  - Anal infection [Unknown]
  - Anal abscess [Unknown]
